FAERS Safety Report 8498826-0 (Version None)
Quarter: 2012Q3

REPORT INFORMATION
  Report Type: 
  Country: None (occurrence: None)
  Receive Date: 20120710
  Receipt Date: 20120703
  Transmission Date: 20120928
  Serious: Yes (Hospitalization)
  Sender: FDA-Public Use
  Company Number: BR-AMGEN-BRASP2012041337

PATIENT
  Age: 25 Year
  Sex: Female
  Weight: 80 kg

DRUGS (3)
  1. CINACALCET HYDROCHLORIDE [Suspect]
     Indication: BLOOD PARATHYROID HORMONE INCREASED
     Dosage: 1 TABLET AT NIGHT
     Route: 048
  2. ADALAT [Concomitant]
     Indication: HYPERTENSION
     Dosage: 2 UNK, UNK
     Route: 048
  3. ALDOMET                            /00000101/ [Concomitant]
     Indication: HYPERTENSION
     Dosage: 1 UNK, UNK
     Route: 048

REACTIONS (1)
  - CEREBROVASCULAR ACCIDENT [None]
